FAERS Safety Report 6291161-0 (Version None)
Quarter: 2009Q3

REPORT INFORMATION
  Report Type: 
  Country: None (occurrence: None)
  Receive Date: 20090730
  Receipt Date: 20090723
  Transmission Date: 20100115
  Serious: Yes (Death, Hospitalization)
  Sender: FDA-Public Use
  Company Number: B0585381A

PATIENT
  Sex: Male

DRUGS (9)
  1. HYCAMTIN [Suspect]
     Dosage: 3MG PER DAY
     Route: 048
     Dates: start: 20090318, end: 20090322
  2. DILTIAZEM [Concomitant]
     Dosage: 200MG PER DAY
     Route: 065
  3. KARDEGIC [Concomitant]
     Dosage: 75MG PER DAY
     Route: 065
  4. SIMVASTATIN [Concomitant]
     Dosage: 20MG PER DAY
     Route: 065
  5. TRIATEC [Concomitant]
     Dosage: 1.25MG PER DAY
     Route: 065
  6. SYMBICORT [Concomitant]
     Route: 065
  7. OMEPRAZOLE [Concomitant]
     Route: 065
  8. FLUOXETINE [Concomitant]
     Route: 065
  9. SPECIAFOLDINE [Concomitant]
     Route: 065

REACTIONS (9)
  - CLOSTRIDIAL INFECTION [None]
  - DEHYDRATION [None]
  - DIARRHOEA INFECTIOUS [None]
  - GENERAL PHYSICAL HEALTH DETERIORATION [None]
  - HYPOVOLAEMIC SHOCK [None]
  - PALLOR [None]
  - PYREXIA [None]
  - SOMNOLENCE [None]
  - VOMITING [None]
